FAERS Safety Report 4379656-8 (Version None)
Quarter: 2004Q2

REPORT INFORMATION
  Report Type: 
  Country: None (occurrence: None)
  Receive Date: 20040614
  Receipt Date: 20040602
  Transmission Date: 20050107
  Serious: Yes (Death)
  Sender: FDA-Public Use
  Company Number: 163-20785-04050543

PATIENT
  Age: 82 Year
  Sex: Male

DRUGS (1)
  1. THALOMIDE (THALIDOMIDE) (50 MILLIGRAM, CAPSULES) [Suspect]
     Indication: MULTIPLE MYELOMA
     Dosage: 150 MG DAILY ORAL
     Route: 048
     Dates: start: 20030718, end: 20040101

REACTIONS (1)
  - RENAL FAILURE [None]
